FAERS Safety Report 6682937-6 (Version None)
Quarter: 2010Q2

REPORT INFORMATION
  Report Type: 
  Country: None (occurrence: None)
  Receive Date: 20100415
  Receipt Date: 20100406
  Transmission Date: 20101027
  Serious: Yes (Other)
  Sender: FDA-Public Use
  Company Number: US-PFIZER INC-2010044090

PATIENT

DRUGS (1)
  1. NEURONTIN [Suspect]
     Dosage: 1800 MG, 3X/DAY

REACTIONS (2)
  - INCORRECT DOSE ADMINISTERED [None]
  - SURGERY [None]
